FAERS Safety Report 12453772 (Version 2)
Quarter: 2016Q2

REPORT INFORMATION
  Report Type: Spontaneous
  Country: US (occurrence: US)
  Receive Date: 20160609
  Receipt Date: 20160613
  Transmission Date: 20160815
  Serious: No
  Sender: FDA-Public Use
  Company Number: PHHY2016US076307

PATIENT
  Age: 63 Year
  Sex: Male

DRUGS (6)
  1. LIORESAL [Suspect]
     Active Substance: BACLOFEN
     Indication: PRODUCT USED FOR UNKNOWN INDICATION
     Dosage: 110.64 UG, QD (2000 MCG/ML)
     Route: 037
     Dates: start: 20160518, end: 20160526
  2. MESALAMINE ER [Suspect]
     Active Substance: MESALAMINE
     Indication: PRODUCT USED FOR UNKNOWN INDICATION
     Dosage: 0.375 G, UNK
     Route: 065
  3. ALPRAZOLAM. [Suspect]
     Active Substance: ALPRAZOLAM
     Indication: PRODUCT USED FOR UNKNOWN INDICATION
     Dosage: 0.5 MG, UNK
     Route: 065
  4. CLARITIN [Suspect]
     Active Substance: LORATADINE
     Indication: PRODUCT USED FOR UNKNOWN INDICATION
     Dosage: 1 DF, QD
     Route: 065
  5. PRISTIQ EXTENDED-RELEASE [Suspect]
     Active Substance: DESVENLAFAXINE SUCCINATE
     Indication: PRODUCT USED FOR UNKNOWN INDICATION
     Dosage: 100 MG, UNK
     Route: 065
  6. LIORESAL [Suspect]
     Active Substance: BACLOFEN
     Dosage: 110.84 UG, QD (500 MCG/ML)
     Route: 037
     Dates: start: 20160526

REACTIONS (10)
  - Asthenia [Recovered/Resolved]
  - Dizziness [Recovered/Resolved]
  - Incorrect dose administered [Recovered/Resolved]
  - Emotional distress [Recovered/Resolved]
  - Gait disturbance [Recovered/Resolved]
  - Viral infection [Recovered/Resolved]
  - Nausea [Recovered/Resolved]
  - Vomiting [Recovered/Resolved]
  - Muscle spasticity [Recovered/Resolved]
  - Muscle spasms [Recovered/Resolved]

NARRATIVE: CASE EVENT DATE: 20160518
